FAERS Safety Report 24358820 (Version 1)
Quarter: 2024Q3

REPORT INFORMATION
  Report Type: Spontaneous
  Country: US (occurrence: None)
  Receive Date: 20240924
  Receipt Date: 20240924
  Transmission Date: 20241017
  Serious: Yes (Disabling, Other)
  Sender: Public
  Company Number: None

PATIENT
  Age: 41 Year
  Sex: Male
  Weight: 99 kg

DRUGS (1)
  1. EXPAREL [Suspect]
     Active Substance: BUPIVACAINE
     Indication: Nerve block
     Dosage: OTHER QUANTITY : 1 INJECTION(S);?
     Dates: start: 20231213, end: 20231213

REACTIONS (2)
  - Rheumatoid arthritis [None]
  - Adverse event [None]

NARRATIVE: CASE EVENT DATE: 20231213
